FAERS Safety Report 25213295 (Version 2)
Quarter: 2025Q4

REPORT INFORMATION
  Report Type: Spontaneous
  Country: EU (occurrence: EU)
  Receive Date: 20250418
  Receipt Date: 20251021
  Transmission Date: 20260117
  Serious: Yes (Hospitalization)
  Sender: ROCHE
  Company Number: None

PATIENT
  Age: 75 Year
  Sex: Female
  Weight: 88 kg

DRUGS (3)
  1. VABYSMO [Suspect]
     Active Substance: FARICIMAB-SVOA
     Indication: Age-related macular degeneration
     Dosage: C4, STRENGTH 120 MG/ML
     Route: 031
     Dates: start: 20250210, end: 20250210
  2. VABYSMO [Suspect]
     Active Substance: FARICIMAB-SVOA
     Dosage: THERAPY START DATE UNKNOWN (FIRST 2 INJECTIONS DONE IN A DIFFERENT HOSPITAL) STRENGTH 120 MG/ML
     Route: 031
     Dates: end: 20250210
  3. EYLEA 40 mg/ml, solution injectable en seringue pr?remplie [Concomitant]
     Indication: Age-related macular degeneration
     Route: 031
     Dates: start: 2024, end: 2024

REACTIONS (4)
  - Uveitis [Recovering/Resolving]
  - Vasculitis [Recovering/Resolving]
  - Uveitis [Recovering/Resolving]
  - Retinal occlusive vasculitis [Recovering/Resolving]

NARRATIVE: CASE EVENT DATE: 20250222
